FAERS Safety Report 8879008 (Version 1)
Quarter: 2012Q4

REPORT INFORMATION
  Report Type: 
  Country: CH (occurrence: CH)
  Receive Date: 20121026
  Receipt Date: 20121026
  Transmission Date: 20130627
  Serious: Yes (Other)
  Sender: FDA-Public Use
  Company Number: CH-SANOFI-AVENTIS-2012SA076893

PATIENT
  Age: 36 Month
  Sex: Male

DRUGS (3)
  1. ZOLPIDEM [Suspect]
     Indication: MATERNAL DRUG EXPOSURE
     Route: 064
  2. FLUCTINE [Suspect]
     Indication: MATERNAL DRUG EXPOSURE
     Route: 064
  3. TOPAMAX [Suspect]
     Indication: MATERNAL DRUG EXPOSURE
     Route: 064

REACTIONS (2)
  - Hypoacusis [Not Recovered/Not Resolved]
  - Foetal exposure during pregnancy [Unknown]
